FAERS Safety Report 7442693-0 (Version None)
Quarter: 2011Q2

REPORT INFORMATION
  Report Type: 
  Country: None (occurrence: None)
  Receive Date: 20110428
  Receipt Date: 20100817
  Transmission Date: 20111010
  Serious: Yes (Hospitalization, Other)
  Sender: FDA-Public Use
  Company Number: US-BAYER-201028561NA

PATIENT
  Age: 30 Year
  Sex: Female
  Weight: 47.6 kg

DRUGS (5)
  1. NAPROXEN (ALEVE) [Concomitant]
     Dosage: UNK UNK, PRN
  2. YASMIN [Suspect]
     Dosage: UNK
     Dates: start: 20010101
  3. PROPOXYPHENE NAPSYLATE W/ ACETAMINOPHEN [Concomitant]
     Indication: PAIN
     Dosage: 100 MG, PRN
     Route: 048
     Dates: start: 20040701
  4. KETOROLAC TROMETHAMINE [Concomitant]
     Indication: PAIN
     Dosage: 10 MG, TID
     Route: 048
     Dates: start: 20040701
  5. DOC-Q-LACE [Concomitant]
     Dosage: 100 MG, UNK
     Route: 048
     Dates: start: 20040701

REACTIONS (4)
  - GALLBLADDER INJURY [None]
  - PANCREATITIS [None]
  - CHOLELITHIASIS [None]
  - CHOLECYSTITIS ACUTE [None]
